FAERS Safety Report 7764775-6 (Version None)
Quarter: 2011Q3

REPORT INFORMATION
  Report Type: 
  Country: None (occurrence: None)
  Receive Date: 20110921
  Receipt Date: 20110921
  Transmission Date: 20111222
  Serious: Yes (Hospitalization)
  Sender: FDA-Public Use
  Company Number: None

PATIENT
  Sex: Female
  Weight: 85 kg

DRUGS (1)
  1. GENETICALLY MODIFIED T CELLS [Suspect]
     Indication: ACUTE MYELOID LEUKAEMIA
     Dosage: 1.3 X 10^6/KG
     Route: 042
     Dates: start: 20110909, end: 20110909

REACTIONS (4)
  - PURULENCE [None]
  - CYST [None]
  - ERYTHEMA [None]
  - LOCAL SWELLING [None]
